FAERS Safety Report 21763146 (Version 1)
Quarter: 2022Q4

REPORT INFORMATION
  Report Type: Report from Study
  Country: CA (occurrence: CA)
  Receive Date: 20221221
  Receipt Date: 20221221
  Transmission Date: 20230112
  Serious: Yes (Other)
  Sender: FDA-Public Use
  Company Number: CA-GILEAD-2022-0601499

PATIENT
  Age: 57 Year
  Sex: Female

DRUGS (3)
  1. SACITUZUMAB GOVITECAN-HZIY [Suspect]
     Active Substance: SACITUZUMAB GOVITECAN-HZIY
     Indication: Triple negative breast cancer
     Dosage: 225 MG
     Route: 042
     Dates: start: 20221012
  2. SACITUZUMAB GOVITECAN-HZIY [Suspect]
     Active Substance: SACITUZUMAB GOVITECAN-HZIY
     Dosage: 300 MG
     Route: 042
     Dates: start: 20221123, end: 20221130
  3. CAPECITABINE [Concomitant]
     Active Substance: CAPECITABINE
     Dosage: UNSPECIFIED CYCLE, DAYS 1,8
     Route: 042
     Dates: start: 20221123, end: 20221130

REACTIONS (12)
  - Disease progression [Not Recovered/Not Resolved]
  - Gastric dilatation [Not Recovered/Not Resolved]
  - Weight fluctuation [Unknown]
  - Weight increased [Unknown]
  - Pyrexia [Unknown]
  - Heart rate increased [Unknown]
  - General physical health deterioration [Unknown]
  - Chills [Unknown]
  - Fatigue [Not Recovered/Not Resolved]
  - Fatigue [Unknown]
  - Decreased appetite [Not Recovered/Not Resolved]
  - Alopecia [Unknown]

NARRATIVE: CASE EVENT DATE: 20220101
